FAERS Safety Report 10454613 (Version 1)
Quarter: 2014Q3

REPORT INFORMATION
  Report Type: Spontaneous
  Country: US (occurrence: US)
  Receive Date: 20140915
  Receipt Date: 20140915
  Transmission Date: 20150326
  Serious: No
  Sender: FDA-Public Use
  Company Number: US-BRISTOL-MYERS SQUIBB COMPANY-19202852

PATIENT
  Age: 66 Year
  Sex: Female
  Weight: 81.63 kg

DRUGS (1)
  1. ONGLYZA [Suspect]
     Active Substance: SAXAGLIPTIN HYDROCHLORIDE

REACTIONS (4)
  - Pain in extremity [Unknown]
  - Temporomandibular joint syndrome [Unknown]
  - Decreased appetite [Unknown]
  - Wrong technique in drug usage process [Unknown]
